FAERS Safety Report 12179294 (Version 2)
Quarter: 2016Q2

REPORT INFORMATION
  Report Type: Spontaneous
  Country: FR (occurrence: FR)
  Receive Date: 20160314
  Receipt Date: 20160407
  Transmission Date: 20160815
  Serious: Yes (Hospitalization, Other)
  Sender: FDA-Public Use
  Company Number: FR-HERITAGE PHARMACEUTICALS-2016HTG00079

PATIENT
  Age: 68 Year
  Sex: Male

DRUGS (7)
  1. VERAPAMIL AND TRANDOLAPRIL [Suspect]
     Active Substance: TRANDOLAPRIL\VERAPAMIL
     Dosage: ^IN A FIXED COMBINATION^, 1X/DAY
     Route: 065
  2. FENOFIBRATE. [Concomitant]
     Active Substance: FENOFIBRATE
     Dosage: 200 MG, 1X/DAY
     Route: 065
  3. OLMESARTAN [Concomitant]
     Active Substance: OLMESARTAN
     Dosage: 20 MG, 1X/DAY
     Route: 065
  4. LORATADINE. [Concomitant]
     Active Substance: LORATADINE
     Dosage: 10 MG, 1X/DAY AS REQUIRED
     Route: 065
  5. IBRUTINIB [Suspect]
     Active Substance: IBRUTINIB
     Dosage: 560 MG, 1X/DAY
     Route: 065
  6. IBRUTINIB [Suspect]
     Active Substance: IBRUTINIB
     Indication: LYMPHOMA
     Dosage: 560 MG, 1X/DAY
     Route: 065
  7. ENTECAVIR. [Concomitant]
     Active Substance: ENTECAVIR
     Indication: HEPATITIS B
     Dosage: 0.5 MG, 1X/DAY
     Route: 065

REACTIONS (6)
  - Fall [Recovered/Resolved]
  - Loss of consciousness [Recovered/Resolved]
  - Diarrhoea [Recovered/Resolved]
  - Toxicity to various agents [Recovered/Resolved]
  - Drug interaction [Recovered/Resolved]
  - Dehydration [Unknown]
